FAERS Safety Report 5241442-4 (Version None)
Quarter: 2007Q1

REPORT INFORMATION
  Report Type: 
  Country: None (occurrence: None)
  Receive Date: 20070212
  Receipt Date: 20070212
  Transmission Date: 20070707
  Serious: Yes (Hospitalization)
  Sender: FDA-Public Use
  Company Number: None

PATIENT
  Sex: Female
  Weight: 74.1 kg

DRUGS (3)
  1. CETUXIMAB [Suspect]
     Indication: BREAST CANCER METASTATIC
     Dosage: 250 MG/M2 IV BOLUS WEEKLY IV 040
     Route: 040
     Dates: start: 20060721, end: 20070119
  2. CARBOPLATIN [Suspect]
     Indication: BREAST CANCER METASTATIC
     Dosage: AUC=2 IV BOLUS 3 OUT OF 4 WEEKS IV 040
     Route: 042
     Dates: start: 20060915, end: 20070119
  3. PULMICORT (BUDESONIDE ORAL INHALER) [Concomitant]

REACTIONS (7)
  - ASTHMA [None]
  - BRONCHIAL OBSTRUCTION [None]
  - BRONCHOSPASM [None]
  - CHEST X-RAY ABNORMAL [None]
  - CHRONIC OBSTRUCTIVE PULMONARY DISEASE [None]
  - CONDITION AGGRAVATED [None]
  - INFECTION [None]
